FAERS Safety Report 24583254 (Version 1)
Quarter: 2024Q4

REPORT INFORMATION
  Report Type: Spontaneous
  Country: US (occurrence: US)
  Receive Date: 20241106
  Receipt Date: 20241106
  Transmission Date: 20250114
  Serious: No
  Sender: Haleon PLC
  Company Number: US-HALEON-2206913

PATIENT

DRUGS (2)
  1. EXCEDRIN [Suspect]
     Active Substance: ACETAMINOPHEN\ASPIRIN\CAFFEINE
     Indication: Product used for unknown indication
  2. EXCEDRIN [Suspect]
     Active Substance: ACETAMINOPHEN\ASPIRIN\CAFFEINE

REACTIONS (2)
  - Poor quality product administered [Unknown]
  - Wrong technique in product usage process [Unknown]
